FAERS Safety Report 7654921-7 (Version None)
Quarter: 2011Q3

REPORT INFORMATION
  Report Type: 
  Country: None (occurrence: None)
  Receive Date: 20110804
  Receipt Date: 20110727
  Transmission Date: 20111222
  Serious: Yes (Hospitalization)
  Sender: FDA-Public Use
  Company Number: US-CELGENEUS-163-22393-11073214

PATIENT
  Sex: Male
  Weight: 111.4 kg

DRUGS (20)
  1. DEXAMETHASONE [Concomitant]
     Route: 065
  2. HYDROCHLOROTHIAZIDE [Concomitant]
     Route: 065
  3. ZOLPIDEM [Concomitant]
     Route: 065
  4. ALPRAZOLAM [Concomitant]
     Route: 065
  5. PROCHLORPERAZINE [Concomitant]
     Route: 065
  6. AMLODIPINE [Concomitant]
     Route: 065
  7. BACTRIM [Concomitant]
     Route: 065
  8. POTASSIUM CHLORIDE [Concomitant]
     Route: 065
  9. ALBUTEROL/IPRATROPI [Concomitant]
     Route: 055
  10. PERCOCET [Concomitant]
     Route: 065
  11. MAALOX PLUS [Concomitant]
     Route: 065
  12. ONDANSETRON [Concomitant]
     Route: 065
  13. PRAVASTATIN [Concomitant]
     Route: 065
  14. TRANDOLAPRIL [Concomitant]
     Route: 065
  15. PREDNISONE [Concomitant]
     Route: 065
  16. ISTODAX [Suspect]
     Indication: ANGIOIMMUNOBLASTIC T-CELL LYMPHOMA
     Dosage: 30 MILLIGRAM
     Route: 041
     Dates: start: 20110715, end: 20110715
  17. FENOFIBRATE [Concomitant]
     Route: 065
  18. MAGNESIUM OXIDE [Concomitant]
     Route: 065
  19. ALLOPURINOL [Concomitant]
     Route: 065
  20. PANTOPRAZOLE [Concomitant]
     Route: 065

REACTIONS (4)
  - DYSPNOEA [None]
  - TACHYCARDIA [None]
  - CHILLS [None]
  - PYREXIA [None]
